FAERS Safety Report 17845558 (Version 6)
Quarter: 2023Q4

REPORT INFORMATION
  Report Type: Spontaneous
  Country: US (occurrence: US)
  Receive Date: 20200601
  Receipt Date: 20231206
  Transmission Date: 20240109
  Serious: No
  Sender: FDA-Public Use
  Company Number: US-PFIZER INC-2020212151

PATIENT
  Age: 64 Year
  Sex: Male
  Weight: 108.84 kg

DRUGS (2)
  1. XELJANZ XR [Suspect]
     Active Substance: TOFACITINIB CITRATE
     Indication: Psoriatic arthropathy
     Dosage: 11 MG, DAILY
     Route: 048
     Dates: start: 20200102
  2. XELJANZ XR [Suspect]
     Active Substance: TOFACITINIB CITRATE
     Dosage: 1 TAB BY MOUTH EVERY OTHER DAY
     Route: 048

REACTIONS (6)
  - Liver disorder [Unknown]
  - Hepatic function abnormal [Unknown]
  - Thyroid disorder [Unknown]
  - Blood pressure abnormal [Unknown]
  - Therapeutic product effect incomplete [Unknown]
  - Off label use [Unknown]
